FAERS Safety Report 5132487-3 (Version None)
Quarter: 2006Q4

REPORT INFORMATION
  Report Type: 
  Country: None (occurrence: None)
  Receive Date: 20061019
  Receipt Date: 20061019
  Transmission Date: 20070319
  Serious: Yes (Other)
  Sender: FDA-Public Use
  Company Number: None

PATIENT
  Sex: Female
  Weight: 73.9363 kg

DRUGS (1)
  1. CYMBALTA [Suspect]
     Indication: MIGRAINE
     Dosage: 60 MG  ONCE DAILY   1 X DAILY   PO
     Route: 048
     Dates: start: 20060819, end: 20061016

REACTIONS (9)
  - CRYING [None]
  - DEPRESSION [None]
  - DRUG WITHDRAWAL SYNDROME [None]
  - DYSPEPSIA [None]
  - HALLUCINATION [None]
  - HYPOAESTHESIA ORAL [None]
  - MANIA [None]
  - NERVOUS SYSTEM DISORDER [None]
  - VISION BLURRED [None]
